FAERS Safety Report 12534510 (Version 1)
Quarter: 2016Q3

REPORT INFORMATION
  Report Type: Spontaneous
  Country: US (occurrence: US)
  Receive Date: 20160706
  Receipt Date: 20160706
  Transmission Date: 20161109
  Serious: No
  Sender: FDA-Public Use
  Company Number: US-PURDUE-USA-2016-0131647

PATIENT
  Age: 59 Year
  Sex: Female

DRUGS (3)
  1. BUTRANS [Suspect]
     Active Substance: BUPRENORPHINE
     Dosage: 15 MCG/HR, WEEKLY
     Route: 062
     Dates: start: 20160609
  2. BUTRANS [Suspect]
     Active Substance: BUPRENORPHINE
     Indication: ARTHRALGIA
     Dosage: 5 MCG/HR, WEEKLY
     Route: 062
     Dates: start: 20160503, end: 201605
  3. BUTRANS [Suspect]
     Active Substance: BUPRENORPHINE
     Dosage: (2) 5 MCG/HR, WEEKLY
     Route: 062
     Dates: start: 201605, end: 201606

REACTIONS (5)
  - Erythema [Not Recovered/Not Resolved]
  - Inadequate analgesia [Recovered/Resolved]
  - Application site erythema [Unknown]
  - Application site warmth [Unknown]
  - Pruritus generalised [Not Recovered/Not Resolved]

NARRATIVE: CASE EVENT DATE: 2016
